FAERS Safety Report 8533073-5 (Version None)
Quarter: 2012Q3

REPORT INFORMATION
  Report Type: 
  Country: None (occurrence: None)
  Receive Date: 20120711
  Receipt Date: 20120702
  Transmission Date: 20120928
  Serious: Yes (Other)
  Sender: FDA-Public Use
  Company Number: AUR-APL-2012-02880

PATIENT
  Age: 31 Year
  Sex: Female

DRUGS (13)
  1. TOPIRAMATE [Concomitant]
  2. LACOSAMIDE [Suspect]
     Indication: PRODUCT USED FOR UNKNOWN INDICATION
     Dosage: 300 MG (150 MG,2 IN 1 D)
  3. CLOBAZAM [Concomitant]
  4. CLONAZEPAM [Concomitant]
  5. LEVETIRACETAM [Suspect]
     Indication: PRODUCT USED FOR UNKNOWN INDICATION
  6. LAMOTRIGINE [Concomitant]
  7. MIDAZOLAM HCL [Concomitant]
  8. PHENOSARBITAL(PHENOBARBITAL) [Concomitant]
  9. VALPROATE SODIUM [Concomitant]
  10. ZONISAMIDE [Concomitant]
  11. PHENYTOIN ( PHENYTOIN) [Concomitant]
  12. VIGABATRIN (VIGABATRIN ) [Concomitant]
  13. PIRACETAM (PI RACETAM) [Concomitant]

REACTIONS (5)
  - GAIT DISTURBANCE [None]
  - DRUG INEFFECTIVE [None]
  - MOVEMENT DISORDER [None]
  - STATUS EPILEPTICUS [None]
  - GENERAL PHYSICAL HEALTH DETERIORATION [None]
